FAERS Safety Report 11465582 (Version 3)
Quarter: 2015Q4

REPORT INFORMATION
  Report Type: Spontaneous
  Country: US (occurrence: US)
  Receive Date: 20150907
  Receipt Date: 20151103
  Transmission Date: 20160304
  Serious: Yes (Hospitalization, Other)
  Sender: FDA-Public Use
  Company Number: US-PFIZER INC-2015284108

PATIENT
  Age: 79 Year
  Sex: Female

DRUGS (27)
  1. ARAVA [Concomitant]
     Active Substance: LEFLUNOMIDE
     Dosage: 10 MG, DAILY
     Route: 048
  2. NORCO [Concomitant]
     Active Substance: ACETAMINOPHEN\HYDROCODONE BITARTRATE
     Dosage: (10-325 MG), EVERY 4 HRS
     Route: 048
  3. RESTORIL [Concomitant]
     Active Substance: TEMAZEPAM
     Dosage: 15 MG, AS NEEDED (1 CAPSULE AT BED TIME)
     Route: 048
  4. FOLIC ACID. [Concomitant]
     Active Substance: FOLIC ACID
     Dosage: 1 MG, DAILY
     Route: 048
  5. METHOTREXATE [Concomitant]
     Active Substance: METHOTREXATE
     Dosage: 2.5 MG, WEEKLY (Q 7 DAYS)
     Route: 048
  6. AFINITOR [Suspect]
     Active Substance: EVEROLIMUS
     Indication: BREAST CANCER METASTATIC
     Dosage: 10 MG, DAILY (1 TABLET)
     Route: 048
     Dates: start: 201412
  7. FLUTICASONE W/SALMETEROL [Concomitant]
     Active Substance: FLUTICASONE PROPIONATE\SALMETEROL XINAFOATE
     Dosage: TAKE AS DIRECTED
  8. INSULIN [Concomitant]
     Active Substance: INSULIN NOS
     Dosage: 70/30 20 UNITS
     Route: 058
  9. PREDNISON [Concomitant]
     Active Substance: PREDNISONE
     Dosage: 2 MG, DAILY
     Route: 048
  10. LOTRISONE [Concomitant]
     Active Substance: BETAMETHASONE DIPROPIONATE\CLOTRIMAZOLE
     Dosage: UNK UNK, AS NEEDED
     Route: 061
  11. ZOMETA [Concomitant]
     Active Substance: ZOLEDRONIC ACID
  12. AROMASIN [Suspect]
     Active Substance: EXEMESTANE
     Indication: BREAST CANCER METASTATIC
     Dosage: 25 MG, UNK
     Route: 048
     Dates: start: 201403
  13. XGEVA [Concomitant]
     Active Substance: DENOSUMAB
     Dosage: 120 MG, 1X/DAY
     Route: 058
  14. GABAPENTIN. [Concomitant]
     Active Substance: GABAPENTIN
     Dosage: 300 MG, 4X/DAY
     Route: 048
  15. LASIX [Concomitant]
     Active Substance: FUROSEMIDE
     Dosage: 40 MG, DAILY
     Route: 048
  16. VITAMIN B3 [Concomitant]
     Active Substance: NIACIN
     Dosage: UNK (TAKE AS DIRECTED)
  17. ALBUTEROL. [Concomitant]
     Active Substance: ALBUTEROL
     Dosage: 2 DF, AS NEEDED (90 MCG/ACT EVERY 6 HOURS)
     Route: 055
  18. BACITRACIN. [Concomitant]
     Active Substance: BACITRACIN
     Dosage: UNK (TAKE AS DIRECTED)
  19. CARVEDILOL. [Concomitant]
     Active Substance: CARVEDILOL
     Dosage: 6.25 MG, 2X/DAY
     Route: 048
  20. PLAVIX [Concomitant]
     Active Substance: CLOPIDOGREL BISULFATE
     Dosage: 75 MG, DAILY
     Route: 048
  21. AROMASIN [Suspect]
     Active Substance: EXEMESTANE
     Dosage: 25 MG, DAILY
     Route: 048
     Dates: start: 20141201
  22. PREDNISONE. [Concomitant]
     Active Substance: PREDNISONE
     Dosage: 5 MG, DAILY
     Route: 048
  23. POTASSIUM CHLORIDE. [Concomitant]
     Active Substance: POTASSIUM CHLORIDE
     Dosage: 60 MEQ, DAILY
     Route: 048
  24. INSULIN [Concomitant]
     Active Substance: INSULIN NOS
     Dosage: 70/30 35 UNITS
     Route: 058
  25. ADVAIR HFA [Concomitant]
     Active Substance: FLUTICASONE PROPIONATE\SALMETEROL XINAFOATE
     Dosage: 1 DF, 2X/DAY (250-50 MCG/DOSE)
     Route: 055
  26. LOTEMAX [Concomitant]
     Active Substance: LOTEPREDNOL ETABONATE
     Dosage: UNK (TAKE AS DIRECTED)
  27. OSCAL /07357001/ [Concomitant]

REACTIONS (22)
  - Peripheral ischaemia [Unknown]
  - Oedema [Unknown]
  - Oesophageal food impaction [Unknown]
  - Rectal ulcer [Unknown]
  - Abdominal pain upper [Unknown]
  - Radiation injury [Unknown]
  - Protein total decreased [Unknown]
  - Blood albumin decreased [Unknown]
  - Arthralgia [Unknown]
  - Disease progression [Unknown]
  - Malabsorption [Not Recovered/Not Resolved]
  - Breast cancer [Unknown]
  - Varicose vein [Unknown]
  - Gangrene [Unknown]
  - Infected skin ulcer [Recovering/Resolving]
  - Haemorrhoids [Unknown]
  - Fatigue [Unknown]
  - Joint range of motion decreased [Unknown]
  - Adenoma benign [Unknown]
  - Gastric ulcer [Unknown]
  - Anaemia [Not Recovered/Not Resolved]
  - Glomerular filtration rate decreased [Unknown]
